FAERS Safety Report 7194922 (Version 4)
Quarter: 2012Q4

REPORT INFORMATION
  Report Type: 
  Country: JP (occurrence: JP)
  Receive Date: 20091201
  Receipt Date: 20121114
  Transmission Date: 20130627
  Serious: Yes (Hospitalization)
  Sender: FDA-Public Use
  Company Number: PHHY2009JP50638

PATIENT
  Age: 1 Year
  Sex: Male

DRUGS (4)
  1. TEGRETOL [Suspect]
     Indication: EPILEPSY
     Route: 048
     Dates: start: 200901
  2. VALPROATE SODIUM [Concomitant]
     Indication: EPILEPSY
     Route: 048
  3. ANTIBIOTICS [Concomitant]
  4. DEXAMETHASONE [Concomitant]
     Dosage: 10 mg,

REACTIONS (6)
  - Histiocytosis haematophagic [Recovered/Resolved]
  - Hyperthermia [Recovered/Resolved]
  - Lymphadenopathy [Recovered/Resolved]
  - Serum ferritin increased [Recovered/Resolved]
  - Human herpes virus 6 serology positive [Recovered/Resolved]
  - Human herpesvirus 7 infection [Recovered/Resolved]
